FAERS Safety Report 5872853-1 (Version None)
Quarter: 2008Q3

REPORT INFORMATION
  Report Type: 
  Country: None (occurrence: None)
  Receive Date: 20080903
  Receipt Date: 20080820
  Transmission Date: 20090109
  Serious: Yes (Other)
  Sender: FDA-Public Use
  Company Number: 2008S1000291

PATIENT

DRUGS (1)
  1. CUBICIN [Suspect]

REACTIONS (3)
  - LIVER FUNCTION TEST ABNORMAL [None]
  - MYALGIA [None]
  - SERUM SICKNESS [None]
